FAERS Safety Report 17469854 (Version 1)
Quarter: 2020Q1

REPORT INFORMATION
  Report Type: Spontaneous
  Country: PT (occurrence: PT)
  Receive Date: 20200227
  Receipt Date: 20200227
  Transmission Date: 20200409
  Serious: Yes (Other)
  Sender: FDA-Public Use
  Company Number: PT-MYLANLABS-2020M1021001

PATIENT
  Age: 50 Year
  Sex: Female

DRUGS (17)
  1. METHOTREXATE. [Suspect]
     Active Substance: METHOTREXATE
     Indication: CENTRAL NERVOUS SYSTEM LEUKAEMIA
     Dosage: 3 CYCLE, R-HYPER-CVAD REGIMEN
     Route: 037
     Dates: start: 201806
  2. DOXORUBICIN [Suspect]
     Active Substance: DOXORUBICIN
     Indication: BURKITT^S LEUKAEMIA
     Dosage: UNK
  3. VINCRISTINE [Suspect]
     Active Substance: VINCRISTINE
     Indication: CENTRAL NERVOUS SYSTEM LEUKAEMIA
     Dosage: 3 CYCLE, R-HYPER-CVAD REGIMEN
     Route: 037
     Dates: start: 201806
  4. LAMIVUDINE. [Concomitant]
     Active Substance: LAMIVUDINE
     Indication: ACQUIRED IMMUNODEFICIENCY SYNDROME
     Dosage: UNK
  5. CYCLOPHOSPHAMIDE. [Suspect]
     Active Substance: CYCLOPHOSPHAMIDE
     Indication: CENTRAL NERVOUS SYSTEM LEUKAEMIA
     Dosage: 3 CYCLE, R-HYPER-CVAD REGIMEN
     Route: 037
     Dates: start: 201806
  6. CYCLOPHOSPHAMIDE. [Suspect]
     Active Substance: CYCLOPHOSPHAMIDE
     Indication: BURKITT^S LEUKAEMIA
     Dosage: UNK
  7. DOLUTEGRAVIR [Concomitant]
     Active Substance: DOLUTEGRAVIR
     Indication: ACQUIRED IMMUNODEFICIENCY SYNDROME
     Dosage: UNK
  8. RITUXIMAB. [Suspect]
     Active Substance: RITUXIMAB
     Indication: BURKITT^S LEUKAEMIA
     Dosage: 3 CYCLE, R-HYPER-CVAD REGIMEN
     Route: 037
     Dates: start: 201806
  9. VINCRISTINE [Suspect]
     Active Substance: VINCRISTINE
     Indication: BURKITT^S LEUKAEMIA
     Dosage: UNK
  10. CYTARABINE. [Suspect]
     Active Substance: CYTARABINE
     Indication: BURKITT^S LEUKAEMIA
     Dosage: UNK
  11. DEXAMETHASONE. [Suspect]
     Active Substance: DEXAMETHASONE
     Indication: CENTRAL NERVOUS SYSTEM LEUKAEMIA
     Dosage: 3 CYCLE, R-HYPER-CVAD REGIMEN
     Route: 037
     Dates: start: 201806
  12. DOXORUBICIN [Suspect]
     Active Substance: DOXORUBICIN
     Indication: CENTRAL NERVOUS SYSTEM LEUKAEMIA
     Dosage: 3 CYCLE, R-HYPER-CVAD REGIMEN
     Route: 037
     Dates: start: 201806
  13. METHOTREXATE. [Suspect]
     Active Substance: METHOTREXATE
     Indication: BURKITT^S LEUKAEMIA
     Dosage: UNK
  14. RITUXIMAB. [Suspect]
     Active Substance: RITUXIMAB
     Indication: CENTRAL NERVOUS SYSTEM LEUKAEMIA
     Dosage: UNK
  15. CYTARABINE. [Suspect]
     Active Substance: CYTARABINE
     Indication: CENTRAL NERVOUS SYSTEM LEUKAEMIA
     Dosage: 3 CYCLE, R-HYPER-CVAD REGIMEN
     Route: 037
     Dates: start: 201806
  16. ABACAVIR. [Concomitant]
     Active Substance: ABACAVIR
     Indication: ACQUIRED IMMUNODEFICIENCY SYNDROME
     Dosage: UNK
  17. DEXAMETHASONE. [Suspect]
     Active Substance: DEXAMETHASONE
     Indication: BURKITT^S LEUKAEMIA
     Dosage: UNK

REACTIONS (9)
  - Spinal cord injury [Recovering/Resolving]
  - Urinary incontinence [Recovering/Resolving]
  - Myelopathy [Recovering/Resolving]
  - Product use issue [Unknown]
  - Product use in unapproved indication [Unknown]
  - Areflexia [Recovering/Resolving]
  - Anal incontinence [Recovering/Resolving]
  - Hypoaesthesia [Recovering/Resolving]
  - Paraparesis [Recovering/Resolving]

NARRATIVE: CASE EVENT DATE: 201812
